FAERS Safety Report 9260588 (Version 1)
Quarter: 2013Q2

REPORT INFORMATION
  Report Type: Spontaneous
  Country: US (occurrence: US)
  Receive Date: 20130426
  Receipt Date: 20130426
  Transmission Date: 20140414
  Serious: Yes (Life-Threatening, Hospitalization, Other)
  Sender: FDA-Public Use
  Company Number: US-RB-052666-13

PATIENT
  Age: 54 Year
  Sex: Male

DRUGS (2)
  1. SUBOXONE FILM [Suspect]
     Indication: DRUG DEPENDENCE
     Dosage: SUBOXONE FILM
     Route: 060
     Dates: end: 201304
  2. SUBOXONE FILM [Suspect]
     Dosage: SUBOXONE FILM
     Route: 060
     Dates: start: 201304

REACTIONS (5)
  - Cardiogenic shock [Recovered/Resolved]
  - Hypotension [Recovered/Resolved]
  - Embolism [Recovered/Resolved]
  - Cardiac tamponade [Recovered/Resolved]
  - Anaemia [Recovering/Resolving]
